FAERS Safety Report 11964839 (Version 1)
Quarter: 2016Q1

REPORT INFORMATION
  Report Type: Spontaneous
  Country: US (occurrence: None)
  Receive Date: 20160125
  Receipt Date: 20160125
  Transmission Date: 20160526
  Serious: Yes (Other)
  Sender: FDA-Public Use
  Company Number: None

PATIENT
  Age: 66 Year
  Sex: Male
  Weight: 106.6 kg

DRUGS (11)
  1. DUTASTERIDE CAP 0.5 MG PHARMACEUTICS [Suspect]
     Active Substance: DUTASTERIDE
     Indication: PROSTATOMEGALY
     Route: 048
     Dates: start: 20151020, end: 20160122
  2. PHENAZOPYRIDINE. [Concomitant]
     Active Substance: PHENAZOPYRIDINE
  3. LOW DOSE ASPIRIN [Concomitant]
     Active Substance: ASPIRIN
  4. 100% NATURAL PSYLLIUM HUSK FIBER [Concomitant]
  5. AZO [Concomitant]
     Active Substance: PHENAZOPYRIDINE HYDROCHLORIDE
  6. TAMSULOSIN CAP 0.4 CITRON PHARMA [Suspect]
     Active Substance: TAMSULOSIN
     Indication: PROSTATOMEGALY
     Route: 048
     Dates: start: 20151020, end: 20160122
  7. CENTRUM SILVER MULTIVITAMIN [Concomitant]
  8. DESONIDE. [Concomitant]
     Active Substance: DESONIDE
  9. OCUVITE [Concomitant]
     Active Substance: VITAMINS
  10. MELOXICAM. [Concomitant]
     Active Substance: MELOXICAM
  11. CINNAMON. [Concomitant]
     Active Substance: CINNAMON

REACTIONS (1)
  - Dermatitis [None]

NARRATIVE: CASE EVENT DATE: 20151203
